FAERS Safety Report 4454514-9 (Version None)
Quarter: 2004Q3

REPORT INFORMATION
  Report Type: 
  Country: None (occurrence: None)
  Receive Date: 20040921
  Receipt Date: 20040913
  Transmission Date: 20050211
  Serious: Yes (Other)
  Sender: FDA-Public Use
  Company Number: PHEH2004US09872

PATIENT
  Age: 64 Year
  Sex: Female

DRUGS (6)
  1. ESTRADERM [Suspect]
     Indication: HORMONE REPLACEMENT THERAPY
     Route: 062
     Dates: start: 19941101, end: 19980714
  2. ESTRING [Suspect]
     Dates: start: 19991213, end: 20010803
  3. PREMARIN [Suspect]
     Dates: start: 19930624, end: 19980714
  4. CYCRIN [Suspect]
     Dates: start: 19941121, end: 19980714
  5. MPA [Suspect]
     Dates: start: 19930624, end: 19980714
  6. PREMARIN H-C VAGINAL CREAM [Suspect]

REACTIONS (1)
  - CEREBROVASCULAR ACCIDENT [None]
